FAERS Safety Report 9316155 (Version 2)
Quarter: 2013Q3

REPORT INFORMATION
  Report Type: Spontaneous
  Country: BR (occurrence: BR)
  Receive Date: 20130530
  Receipt Date: 20130701
  Transmission Date: 20140515
  Serious: Yes (Other)
  Sender: FDA-Public Use
  Company Number: BR-AMGEN-BRASP2008000183

PATIENT
  Age: 68 Year
  Sex: Female

DRUGS (11)
  1. ENBREL [Suspect]
     Indication: RHEUMATOID ARTHRITIS
     Dosage: 25 MG, TWICE WEEKLY
     Route: 065
     Dates: start: 200706
  2. ENBREL [Suspect]
     Dosage: 50 MG, ONCE A WEEK
     Route: 058
     Dates: start: 200706
  3. SYNTHROID [Concomitant]
     Dosage: 50 MG, ONCE A DAY
  4. TECTA [Concomitant]
     Dosage: 40 MG, QD
  5. TRAYENTA [Concomitant]
     Dosage: 5 MG, QD
  6. ALOIS [Concomitant]
     Dosage: 10 MG, QD
  7. ARADOIS [Concomitant]
     Dosage: 50 MG, QD
  8. GLIFAGE [Concomitant]
     Dosage: 1000 MG (2 TABLETS 500MG) , ONCE A DAY
  9. CRESTOR [Concomitant]
     Dosage: 10 MG, EVER OTHER DAY
  10. ZETIA [Concomitant]
     Dosage: 10 MG, EVERY OTHER DAY
  11. VALDOXAN [Concomitant]
     Dosage: 25 MG, 1 TABLET, ONCE A DAY

REACTIONS (8)
  - Diabetes mellitus [Not Recovered/Not Resolved]
  - Pain in extremity [Not Recovered/Not Resolved]
  - Muscle spasms [Not Recovered/Not Resolved]
  - Musculoskeletal stiffness [Not Recovered/Not Resolved]
  - Asthenia [Not Recovered/Not Resolved]
  - Hypertension [Not Recovered/Not Resolved]
  - Nail disorder [Unknown]
  - Alopecia [Unknown]
